FAERS Safety Report 7959052-4 (Version None)
Quarter: 2011Q4

REPORT INFORMATION
  Report Type: 
  Country: None (occurrence: None)
  Receive Date: 20111206
  Receipt Date: 20110907
  Transmission Date: 20120403
  Serious: No
  Sender: FDA-Public Use
  Company Number: US-GLAXOSMITHKLINE-A0933442A

PATIENT
  Age: 10 Year
  Sex: Male

DRUGS (3)
  1. LAMICTAL [Suspect]
     Dates: start: 20110627
  2. NO CONCURRENT MEDICATION [Concomitant]
  3. LAMICTAL [Suspect]
     Indication: EPILEPSY
     Route: 048

REACTIONS (1)
  - DRUG ADMINISTRATION ERROR [None]
